FAERS Safety Report 18945656 (Version 3)
Quarter: 2022Q2

REPORT INFORMATION
  Report Type: Spontaneous
  Country: US (occurrence: US)
  Receive Date: 20210226
  Receipt Date: 20220523
  Transmission Date: 20220720
  Serious: Yes (Hospitalization)
  Sender: FDA-Public Use
  Company Number: US-RECORDATI RARE DISEASES-US-R13005-19-00038

PATIENT
  Age: 67 Year
  Sex: Female
  Weight: 98.9 kg

DRUGS (7)
  1. DESOXYN [Suspect]
     Active Substance: METHAMPHETAMINE HYDROCHLORIDE
     Indication: Narcolepsy
     Dosage: 210 TABLETES FOR 30 DAYS, 7 PILLS A DAY
     Route: 048
     Dates: start: 201902
  2. DESOXYN [Suspect]
     Active Substance: METHAMPHETAMINE HYDROCHLORIDE
     Indication: Cataplexy
     Dosage: 3-4 PILLS A DAY
     Route: 048
  3. DESOXYN [Suspect]
     Active Substance: METHAMPHETAMINE HYDROCHLORIDE
     Dosage: 7 PILLS A DAY
     Route: 048
  4. DESOXYN [Suspect]
     Active Substance: METHAMPHETAMINE HYDROCHLORIDE
     Dosage: UNK
     Route: 048
     Dates: start: 2002
  5. UNSPECIFIED INGREDIENT [Concomitant]
     Active Substance: UNSPECIFIED INGREDIENT
     Indication: Product used for unknown indication
     Dosage: UNK UNK, UNK
     Route: 065
  6. UNSPECIFIED INGREDIENT [Concomitant]
     Active Substance: UNSPECIFIED INGREDIENT
     Indication: Product used for unknown indication
     Dosage: UNK UNK, UNK
     Route: 065
  7. VITAMINS NOS [Concomitant]
     Active Substance: VITAMINS
     Indication: Product used for unknown indication
     Dosage: UNK UNK, UNK
     Route: 065

REACTIONS (17)
  - Surgery [Recovered/Resolved]
  - Infection [Unknown]
  - Agitation [Unknown]
  - Withdrawal syndrome [Unknown]
  - Impaired driving ability [Unknown]
  - Social problem [Unknown]
  - Cough [Not Recovered/Not Resolved]
  - Wrist fracture [Recovered/Resolved]
  - Oropharyngeal pain [Not Recovered/Not Resolved]
  - Sleep disorder [Unknown]
  - Malaise [Unknown]
  - Insurance issue [Unknown]
  - Off label use [Unknown]
  - Therapy interrupted [Unknown]
  - Underdose [Unknown]
  - Product packaging quantity issue [Unknown]
  - Product dose omission issue [Recovered/Resolved]

NARRATIVE: CASE EVENT DATE: 20210518
